FAERS Safety Report 5257678-2 (Version None)
Quarter: 2007Q1

REPORT INFORMATION
  Report Type: 
  Country: None (occurrence: None)
  Receive Date: 20070307
  Receipt Date: 20070228
  Transmission Date: 20070707
  Serious: Yes (Hospitalization)
  Sender: FDA-Public Use
  Company Number: 2006UW07706

PATIENT
  Sex: Female
  Weight: 82.7 kg

DRUGS (2)
  1. SEROQUEL [Suspect]
     Route: 048
     Dates: start: 20040101, end: 20060101
  2. ZYPREXA [Concomitant]

REACTIONS (3)
  - CARDIAC DISORDER [None]
  - CHOLELITHIASIS [None]
  - PANCREATITIS [None]
